FAERS Safety Report 4786575-1 (Version None)
Quarter: 2005Q3

REPORT INFORMATION
  Report Type: 
  Country: None (occurrence: None)
  Receive Date: 20050927
  Receipt Date: 20050603
  Transmission Date: 20060218
  Serious: No
  Sender: FDA-Public Use
  Company Number: USA050699681

PATIENT
  Age: 9 Year
  Sex: Male
  Weight: 29 kg

DRUGS (2)
  1. STRATTERA [Suspect]
     Indication: DISTURBANCE IN ATTENTION
     Dosage: 40 MG
     Dates: start: 20050527
  2. CONCERTA [Concomitant]

REACTIONS (1)
  - FATIGUE [None]
